FAERS Safety Report 5087805-1 (Version None)
Quarter: 2006Q3

REPORT INFORMATION
  Report Type: 
  Country: None (occurrence: None)
  Receive Date: 20060824
  Receipt Date: 20060816
  Transmission Date: 20061208
  Serious: Yes (Hospitalization)
  Sender: FDA-Public Use
  Company Number: FR-ROCHE-460004

PATIENT
  Age: 61 Year
  Sex: Male

DRUGS (5)
  1. ROCEPHIN [Suspect]
     Indication: PROPHYLAXIS
     Dosage: FORM: INJECTABLE SOLUTION.
     Route: 042
     Dates: start: 20050404, end: 20050404
  2. CORDARONE [Concomitant]
     Indication: ANAESTHESIA
  3. DIGOXIN [Concomitant]
     Indication: ANAESTHESIA
  4. LASILIX [Concomitant]
     Indication: ANAESTHESIA
  5. TRIATEC [Concomitant]
     Indication: ANAESTHESIA

REACTIONS (5)
  - ANAPHYLACTIC SHOCK [None]
  - ANAPHYLACTOID SHOCK [None]
  - CARDIAC ARREST [None]
  - HYPERSENSITIVITY [None]
  - RESPIRATORY ARREST [None]
